FAERS Safety Report 8589619-4 (Version None)
Quarter: 2012Q3

REPORT INFORMATION
  Report Type: 
  Country: None (occurrence: None)
  Receive Date: 20120813
  Receipt Date: 20120808
  Transmission Date: 20120928
  Serious: Yes (Hospitalization)
  Sender: FDA-Public Use
  Company Number: IE-ROCHE-1082490

PATIENT
  Age: 69 Year
  Sex: Male
  Weight: 67.1 kg

DRUGS (9)
  1. ATORVASTATIN [Concomitant]
     Dates: start: 20040101
  2. OMEPRAZOLE [Concomitant]
  3. ORAMORPH SR [Concomitant]
     Dates: start: 20120420
  4. ATENOLOL [Concomitant]
     Dates: start: 20040101
  5. ZELBORAF [Suspect]
     Indication: MALIGNANT MELANOMA
     Dosage: LAST DOSE: 26 JUN 2012
     Route: 048
     Dates: start: 20120504
  6. CALCIUM CARBONATE [Concomitant]
     Dates: start: 20120330
  7. OMEPRAZOLE [Concomitant]
     Dosage: LOSEC
     Dates: start: 20040101
  8. ASPIRIN [Concomitant]
     Dates: start: 20120101
  9. MORPHINE [Concomitant]
     Dosage: 1.5-3/MG
     Dates: start: 20120428

REACTIONS (2)
  - PNEUMONIA [None]
  - LOWER RESPIRATORY TRACT INFECTION [None]
